FAERS Safety Report 8997449 (Version 1)
Quarter: 2013Q1

REPORT INFORMATION
  Report Type: Spontaneous
  Country: US (occurrence: US)
  Receive Date: 20130104
  Receipt Date: 20130104
  Transmission Date: 20140127
  Serious: Yes (Other)
  Sender: FDA-Public Use
  Company Number: CHPA2012US026010

PATIENT
  Age: 84 Year
  Sex: Female

DRUGS (2)
  1. GAS-X PREVENTION [Suspect]
     Indication: FLATULENCE
     Dosage: 1 DF BEFORE BED, AS NEEDED
     Route: 048
     Dates: end: 201211
  2. GAS-X [Suspect]
     Indication: DYSPEPSIA
     Dosage: 2 STRIPS AS NEEDED
     Route: 048

REACTIONS (6)
  - Tooth fracture [Not Recovered/Not Resolved]
  - Toothache [Not Recovered/Not Resolved]
  - Nasal congestion [Recovered/Resolved]
  - Initial insomnia [Recovered/Resolved]
  - Oropharyngeal pain [Recovered/Resolved]
  - Nasopharyngitis [Recovered/Resolved]
